FAERS Safety Report 6176888-3 (Version None)
Quarter: 2009Q2

REPORT INFORMATION
  Report Type: 
  Country: None (occurrence: None)
  Receive Date: 20090501
  Receipt Date: 20090423
  Transmission Date: 20091009
  Serious: Yes (Hospitalization, Other)
  Sender: FDA-Public Use
  Company Number: BE-ABBOTT-09P-013-0569832-00

PATIENT
  Sex: Female
  Weight: 75 kg

DRUGS (5)
  1. HUMIRA [Suspect]
     Indication: CROHN'S DISEASE
     Route: 058
     Dates: start: 20080317
  2. NULYTELY [Concomitant]
     Indication: CONSTIPATION
     Dates: start: 20071101, end: 20080101
  3. VENOFER [Concomitant]
     Indication: IRON DEFICIENCY ANAEMIA
     Dates: start: 20080725, end: 20081022
  4. ZALDIAR [Concomitant]
     Indication: ARTHRALGIA
     Dates: start: 20080101
  5. DAFALGAN CODEINE [Concomitant]
     Indication: PAIN
     Dates: start: 20080101, end: 20080101

REACTIONS (1)
  - MENINGIOMA [None]
